FAERS Safety Report 9991298 (Version 3)
Quarter: 2014Q4

REPORT INFORMATION
  Report Type: Spontaneous
  Country: US (occurrence: US)
  Receive Date: 20140310
  Receipt Date: 20141201
  Transmission Date: 20150529
  Serious: Yes (Other)
  Sender: FDA-Public Use
  Company Number: US-BAYER-2014-034649

PATIENT
  Age: 25 Year
  Sex: Female
  Weight: 77 kg

DRUGS (2)
  1. MIRENA [Suspect]
     Active Substance: LEVONORGESTREL
     Indication: CONTRACEPTION
     Dosage: 20 MCG/24HR, CONT
     Route: 015
     Dates: start: 20100224, end: 201107
  2. MIRENA [Suspect]
     Active Substance: LEVONORGESTREL
     Indication: CONTRACEPTION
     Dosage: 20 MCG/24HR, CONT
     Route: 015
     Dates: start: 20070212, end: 20090309

REACTIONS (5)
  - Pelvic inflammatory disease [None]
  - Abdominal pain [None]
  - Infection [None]
  - Injury [None]
  - Uterine perforation [None]

NARRATIVE: CASE EVENT DATE: 2011
